FAERS Safety Report 9494641 (Version 1)
Quarter: 2013Q3

REPORT INFORMATION
  Report Type: Spontaneous
  Country: CH (occurrence: CH)
  Receive Date: 20130903
  Receipt Date: 20130903
  Transmission Date: 20140515
  Serious: Yes (Death, Other)
  Sender: FDA-Public Use
  Company Number: CH-ELI_LILLY_AND_COMPANY-CH201308007543

PATIENT
  Age: 64 Year
  Sex: Female

DRUGS (6)
  1. ZYPREXA [Suspect]
     Indication: SCHIZOPHRENIA
     Dosage: 10 MG, UNKNOWN
     Dates: start: 20000927
  2. ZYPREXA [Suspect]
     Dosage: 5 MG, SINGLE
     Dates: start: 20000926
  3. ZYPREXA [Suspect]
     Dosage: 5 MG, UNKNOWN
  4. TEMESTA [Concomitant]
     Dosage: 4.5 DF, UNKNOWN
     Dates: start: 20000927
  5. ZESTRIL [Concomitant]
     Dosage: 5 MG, UNKNOWN
  6. ZOCOR [Concomitant]
     Dosage: 20 MG, UNKNOWN

REACTIONS (2)
  - Myocardial infarction [Fatal]
  - Arrhythmia [Unknown]
